FAERS Safety Report 6050491-8 (Version None)
Quarter: 2009Q1

REPORT INFORMATION
  Report Type: 
  Country: None (occurrence: None)
  Receive Date: 20090126
  Receipt Date: 20090122
  Transmission Date: 20090719
  Serious: Yes (Other)
  Sender: FDA-Public Use
  Company Number: US-BAYER-200831833NA

PATIENT
  Age: 52 Year
  Sex: Female
  Weight: 100 kg

DRUGS (1)
  1. CLIMARA [Suspect]
     Indication: MENOPAUSE
     Route: 062
     Dates: start: 20040101

REACTIONS (3)
  - HORMONE LEVEL ABNORMAL [None]
  - PRODUCT QUALITY ISSUE [None]
  - TRIGEMINAL NEURALGIA [None]
